FAERS Safety Report 24451442 (Version 1)
Quarter: 2024Q4

REPORT INFORMATION
  Report Type: Spontaneous
  Country: FR (occurrence: FR)
  Receive Date: 20241017
  Receipt Date: 20241017
  Transmission Date: 20250115
  Serious: Yes (Hospitalization)
  Sender: ELI LILLY AND COMPANY
  Company Number: None

PATIENT
  Age: 57 Year
  Sex: Male
  Weight: 68 kg

DRUGS (1)
  1. RETEVMO [Suspect]
     Active Substance: SELPERCATINIB
     Indication: Lung adenocarcinoma
     Dosage: 4 DOSAGE FORM, DAILY
     Route: 048
     Dates: start: 20240902, end: 20240929

REACTIONS (2)
  - Drug monitoring procedure not performed [Recovered/Resolved]
  - Mixed liver injury [Unknown]

NARRATIVE: CASE EVENT DATE: 20240901
